FAERS Safety Report 9856105 (Version 2)
Quarter: 2014Q1

REPORT INFORMATION
  Report Type: Report from Study
  Country: US (occurrence: US)
  Receive Date: 20140130
  Receipt Date: 20140320
  Transmission Date: 20141002
  Serious: Yes (Other)
  Sender: FDA-Public Use
  Company Number: PHHY2014US010149

PATIENT
  Age: 56 Year
  Sex: Female
  Weight: 58.5 kg

DRUGS (11)
  1. GILENYA [Suspect]
     Indication: MULTIPLE SCLEROSIS
     Dosage: 0.5 MG, QD
     Route: 048
     Dates: start: 20131105, end: 20131107
  2. GILENYA [Suspect]
     Dosage: 0.5 MG, QD
     Route: 048
     Dates: end: 201312
  3. ARICEPT [Concomitant]
  4. BACLOFEN [Concomitant]
  5. EFEXOR XR [Concomitant]
  6. NORCO [Concomitant]
  7. PROVIGIL//MODAFINIL [Concomitant]
  8. SINGULAIR [Concomitant]
  9. TRAZODONE HCL [Concomitant]
  10. XANAX [Concomitant]
  11. ZANAFLEX [Concomitant]

REACTIONS (2)
  - Iris disorder [Recovered/Resolved with Sequelae]
  - Rash [Recovered/Resolved with Sequelae]
